FAERS Safety Report 13468907 (Version 1)
Quarter: 2017Q2

REPORT INFORMATION
  Report Type: Spontaneous
  Country: KR (occurrence: KR)
  Receive Date: 20170421
  Receipt Date: 20170421
  Transmission Date: 20170830
  Serious: Yes (Other)
  Sender: FDA-Public Use
  Company Number: KR-GUERBET-KR-20170016

PATIENT

DRUGS (2)
  1. LIPIODOL ULTRA-FLUIDE [Suspect]
     Active Substance: ETHIODIZED OIL
     Indication: THERAPEUTIC EMBOLISATION
     Route: 065
  2. N-BUTYL-2-CYANOACRYLATE [Concomitant]
     Active Substance: UNSPECIFIED INGREDIENT
     Indication: THERAPEUTIC EMBOLISATION
     Route: 065

REACTIONS (2)
  - Cerebellar infarction [Recovered/Resolved]
  - Off label use [Recovered/Resolved]
